FAERS Safety Report 16133865 (Version 2)
Quarter: 2019Q2

REPORT INFORMATION
  Report Type: Spontaneous
  Country: US (occurrence: US)
  Receive Date: 20190329
  Receipt Date: 20190618
  Transmission Date: 20190711
  Serious: Yes (Other)
  Sender: FDA-Public Use
  Company Number: US-TORRENT-00007859

PATIENT
  Age: 41 Year
  Sex: Male
  Weight: 95 kg

DRUGS (1)
  1. LOSARTAN AND HYDROCHLOROTHIAZIDE [Suspect]
     Active Substance: HYDROCHLOROTHIAZIDE\LOSARTAN POTASSIUM
     Indication: HYPERTENSION
     Dosage: 50/12.5 MG, DAILY
     Dates: start: 201708, end: 201901

REACTIONS (10)
  - General physical health deterioration [Unknown]
  - Gastrointestinal pain [Unknown]
  - Mental disorder [Unknown]
  - Gastrointestinal infection [Unknown]
  - Hepatic function abnormal [Not Recovered/Not Resolved]
  - Abdominal pain [Unknown]
  - Abdominal pain upper [Unknown]
  - Sigmoidectomy [Unknown]
  - Cholecystectomy [Unknown]
  - Disturbance in attention [Unknown]

NARRATIVE: CASE EVENT DATE: 201708
